FAERS Safety Report 23182359 (Version 1)
Quarter: 2023Q4

REPORT INFORMATION
  Report Type: Spontaneous
  Country: US (occurrence: None)
  Receive Date: 20231114
  Receipt Date: 20231114
  Transmission Date: 20240110
  Serious: Yes (Hospitalization)
  Sender: FDA-Public Use
  Company Number: None

PATIENT
  Age: 75 Year
  Sex: Female
  Weight: 57.2 kg

DRUGS (2)
  1. AZACITIDINE [Suspect]
     Active Substance: AZACITIDINE
     Dates: end: 20231007
  2. VENETOCLAX [Suspect]
     Active Substance: VENETOCLAX
     Dates: end: 20231102

REACTIONS (3)
  - Neutropenia [None]
  - Diverticulitis [None]
  - Colonic abscess [None]

NARRATIVE: CASE EVENT DATE: 20231102
